FAERS Safety Report 8113542-2 (Version None)
Quarter: 2012Q1

REPORT INFORMATION
  Report Type: 
  Country: None (occurrence: None)
  Receive Date: 20120203
  Receipt Date: 20120124
  Transmission Date: 20120608
  Serious: Yes (Hospitalization, Other)
  Sender: FDA-Public Use
  Company Number: RO-ABBOTT-11P-135-0867802-00

PATIENT
  Sex: Male
  Weight: 62 kg

DRUGS (5)
  1. HUMIRA [Suspect]
     Indication: ANKYLOSING SPONDYLITIS
     Route: 058
     Dates: start: 20110301, end: 20110901
  2. SULFASALAZINE [Concomitant]
     Indication: CROHN'S DISEASE
  3. SULFASALAZINE [Concomitant]
     Indication: ANKYLOSING SPONDYLITIS
  4. ALPHA D3 [Concomitant]
     Indication: OSTEOPOROSIS
  5. CALCIUM [Concomitant]
     Indication: OSTEOPOROSIS

REACTIONS (10)
  - TUBERCULOSIS GASTROINTESTINAL [None]
  - ASCITES [None]
  - CHILLS [None]
  - ASTHENIA [None]
  - PHARYNGEAL OEDEMA [None]
  - PYREXIA [None]
  - LARYNGEAL OEDEMA [None]
  - LARYNGEAL DISORDER [None]
  - PHARYNGEAL DISORDER [None]
  - WEIGHT DECREASED [None]
